FAERS Safety Report 24302258 (Version 2)
Quarter: 2024Q4

REPORT INFORMATION
  Report Type: Spontaneous
  Country: CA (occurrence: CA)
  Receive Date: 20240910
  Receipt Date: 20241014
  Transmission Date: 20250115
  Serious: Yes (Other)
  Sender: PFIZER
  Company Number: CA-PFIZER INC-PV202300172700

PATIENT
  Age: 66 Year
  Sex: Male
  Weight: 111.1 kg

DRUGS (6)
  1. ZIRABEV [Suspect]
     Active Substance: BEVACIZUMAB-BVZR
     Indication: Glioblastoma
     Dosage: 1600 MG, EVERY 21 DAYS (REPEATS: 17)
     Route: 042
     Dates: start: 202310
  2. ZIRABEV [Suspect]
     Active Substance: BEVACIZUMAB-BVZR
     Dosage: 1600 MG, EVERY 21 DAYS (REPEATS: 17)
     Route: 042
     Dates: start: 20231101
  3. ZIRABEV [Suspect]
     Active Substance: BEVACIZUMAB-BVZR
     Dosage: 1600 MG, EVERY 21 DAYS
     Route: 042
     Dates: start: 20240101
  4. ZIRABEV [Suspect]
     Active Substance: BEVACIZUMAB-BVZR
     Dosage: 1600 MG, EVERY 21 DAYS
     Route: 042
     Dates: start: 20240214, end: 20240724
  5. LOMUSTINE [Concomitant]
     Active Substance: LOMUSTINE
     Indication: Glioblastoma
     Dosage: UNK
  6. LOMUSTINE [Concomitant]
     Active Substance: LOMUSTINE
     Dosage: 120 MG (CYCLE 4, 5, 6)
     Route: 048

REACTIONS (4)
  - Thrombocytopenia [Recovered/Resolved]
  - Off label use [Unknown]
  - Product use issue [Unknown]
  - Inappropriate schedule of product administration [Unknown]

NARRATIVE: CASE EVENT DATE: 20231001
